FAERS Safety Report 6359469-8 (Version None)
Quarter: 2009Q3

REPORT INFORMATION
  Report Type: 
  Country: None (occurrence: None)
  Receive Date: 20090917
  Receipt Date: 20090907
  Transmission Date: 20100115
  Serious: Yes (Life-Threatening)
  Sender: FDA-Public Use
  Company Number: JP-ABBOTT-09P-087-0594829-00

PATIENT
  Age: 71 Year
  Sex: Male

DRUGS (8)
  1. LEUPLIN SR FOR INJECTION 11.25 MG [Suspect]
     Indication: PROSTATE CANCER STAGE II
     Route: 058
     Dates: start: 20060605, end: 20070212
  2. BLOPRESS [Concomitant]
     Indication: HYPERTENSION
     Route: 048
     Dates: end: 20070212
  3. CHLORMADINONE ACETATE TAB [Concomitant]
     Indication: PROSTATE CANCER STAGE II
     Route: 048
     Dates: end: 20070212
  4. GASTER D [Concomitant]
     Indication: GASTRITIS
     Route: 048
     Dates: end: 20070212
  5. MEVALOTIN [Concomitant]
     Indication: HYPERLIPIDAEMIA
     Route: 048
     Dates: end: 20070212
  6. AMOBAN [Concomitant]
     Indication: INSOMNIA
     Route: 048
     Dates: end: 20070212
  7. MENESIT [Concomitant]
     Indication: PARKINSON'S DISEASE
     Route: 048
     Dates: end: 20070212
  8. WARFARIN [Concomitant]
     Indication: CARDIAC VALVE DISEASE
     Route: 048
     Dates: end: 20070212

REACTIONS (1)
  - CEREBRAL INFARCTION [None]
